FAERS Safety Report 18172025 (Version 1)
Quarter: 2020Q3

REPORT INFORMATION
  Report Type: Spontaneous
  Country: US (occurrence: US)
  Receive Date: 20200819
  Receipt Date: 20200819
  Transmission Date: 20201103
  Serious: Yes (Other)
  Sender: FDA-Public Use
  Company Number: NVSC2020US228978

PATIENT

DRUGS (1)
  1. METHOTREXATE. [Suspect]
     Active Substance: METHOTREXATE
     Indication: PROPHYLAXIS AGAINST GRAFT VERSUS HOST DISEASE
     Dosage: 7.5 MG/M2, QD ON DAYS 1, 3 AND 6 AND 11 AFTER BONE MARROW TRANSPLANT
     Route: 042

REACTIONS (2)
  - Acute graft versus host disease in liver [Unknown]
  - Product use in unapproved indication [Unknown]
